FAERS Safety Report 9518666 (Version 1)
Quarter: 2013Q1

REPORT INFORMATION
  Report Type: Spontaneous
  Country: US (occurrence: None)
  Receive Date: 20130305
  Receipt Date: 20130305
  Transmission Date: 20140127
  Serious: Yes (Other)
  Sender: FDA-Public Use
  Company Number: 163-21880-11123654

PATIENT
  Age: 65 Year
  Sex: Female
  Weight: 109.3 kg

DRUGS (7)
  1. REVLIMID [Suspect]
     Indication: PLASMA CELL MYELOMA
     Dosage: DAILY X 21 DAYS, PO
     Route: 048
     Dates: start: 20111128
  2. ZOMETA (ZOLEDRONIC ACID) (UNKNOWN) [Concomitant]
  3. ONDANSETRON (ONDANASETRON) (UNKNOWN) [Concomitant]
  4. ASPIRN (ACETYLSALICYLIC ACID) (UNKNOWN)? [Concomitant]
  5. SENOKOT (SENNA FRUIT) (UNKNOWN) [Concomitant]
  6. COLACE (DOCUSATE SODIUM) (UNKNOWN) [Concomitant]
  7. ZOFRAN (ONDANSETRON HYDROCHLORIDE) (UNKNOWN) [Concomitant]

REACTIONS (8)
  - Haemoglobin decreased [None]
  - Red blood cell count decreased [None]
  - Loss of consciousness [None]
  - Platelet count decreased [None]
  - Nausea [None]
  - Constipation [None]
  - Bone pain [None]
  - Local swelling [None]
